FAERS Safety Report 7139152-1 (Version None)
Quarter: 2010Q4

REPORT INFORMATION
  Report Type: 
  Country: None (occurrence: None)
  Receive Date: 20101206
  Receipt Date: 20101201
  Transmission Date: 20110411
  Serious: Yes (Death, Hospitalization, Other)
  Sender: FDA-Public Use
  Company Number: US-ASTRAZENECA-2010SE56963

PATIENT
  Sex: Female

DRUGS (5)
  1. SEROQUEL XR [Suspect]
     Indication: BIPOLAR I DISORDER
     Route: 048
  2. SEROQUEL XR [Suspect]
     Indication: PARANOIA
     Route: 048
  3. RISPERDAL [Concomitant]
  4. KLONOPIN [Concomitant]
  5. PREDNISONE [Concomitant]

REACTIONS (4)
  - BRONCHITIS [None]
  - DEATH [None]
  - PNEUMONIA [None]
  - PULMONARY MASS [None]
